FAERS Safety Report 18608286 (Version 1)
Quarter: 2020Q4

REPORT INFORMATION
  Report Type: Report from Study
  Country: BR (occurrence: BR)
  Receive Date: 20201212
  Receipt Date: 20201212
  Transmission Date: 20210114
  Serious: Yes (Hospitalization, Other)
  Sender: FDA-Public Use
  Company Number: NVSC2020BR327875

PATIENT
  Sex: Female

DRUGS (1)
  1. DIOVAN AMLO FIX [Suspect]
     Active Substance: AMLODIPINE\VALSARTAN
     Indication: PRODUCT USED FOR UNKNOWN INDICATION
     Dosage: 165 MG (160+5 MG)(START DATE- A LONG TIME AGO, IN THE 90S)(MANUFACTURING DATE MAY 2020)
     Route: 065

REACTIONS (4)
  - Respiratory disorder [Unknown]
  - Stress cardiomyopathy [Unknown]
  - Cardiac disorder [Unknown]
  - Pulmonary oedema [Unknown]
